FAERS Safety Report 8201336-9 (Version None)
Quarter: 2012Q1

REPORT INFORMATION
  Report Type: 
  Country: None (occurrence: None)
  Receive Date: 20120312
  Receipt Date: 20120308
  Transmission Date: 20120608
  Serious: Yes (Hospitalization)
  Sender: FDA-Public Use
  Company Number: VE-ABBOTT-11P-178-0884563-00

PATIENT
  Sex: Female
  Weight: 68 kg

DRUGS (10)
  1. HUMIRA [Suspect]
     Indication: PSORIASIS
     Route: 058
     Dates: start: 20080826, end: 20110515
  2. ENBREL [Concomitant]
     Indication: PRODUCT USED FOR UNKNOWN INDICATION
     Dates: start: 20120123
  3. ADALAT [Concomitant]
     Indication: HYPERTENSION
     Route: 048
     Dates: start: 20111101
  4. LANSOPRAZOLE [Concomitant]
     Indication: GASTRIC DISORDER
     Dates: start: 20111101
  5. HUMIRA [Suspect]
     Indication: RHEUMATOID ARTHRITIS
  6. BIBLOC [Concomitant]
     Indication: HYPERTENSION
     Route: 048
     Dates: start: 20111101
  7. SIMVASTATIN [Concomitant]
     Indication: HYPERTENSION
     Route: 048
     Dates: start: 20111101
  8. COZAAR [Concomitant]
     Indication: HYPERTENSION
     Route: 048
     Dates: start: 20111101
  9. LANSOPRAZOLE [Concomitant]
     Indication: PROPHYLAXIS
  10. GLUCOFAGE [Concomitant]
     Indication: TYPE 2 DIABETES MELLITUS
     Dates: start: 20111101

REACTIONS (3)
  - FIBROCYSTIC BREAST DISEASE [None]
  - CEREBROVASCULAR ACCIDENT [None]
  - HYPERTENSION [None]
